FAERS Safety Report 17920618 (Version 2)
Quarter: 2021Q1

REPORT INFORMATION
  Report Type: Spontaneous
  Country: US (occurrence: US)
  Receive Date: 20200621
  Receipt Date: 20210209
  Transmission Date: 20210419
  Serious: Yes (Hospitalization, Other)
  Sender: FDA-Public Use
  Company Number: US-B.I. PHARMACEUTICALS,INC./RIDGEFIELD-2020-BI-029872

PATIENT
  Age: 43 Year

DRUGS (3)
  1. METFORMIN [Suspect]
     Active Substance: METFORMIN HYDROCHLORIDE
     Indication: TYPE 2 DIABETES MELLITUS
  2. DULAGLUTIDE. [Concomitant]
     Active Substance: DULAGLUTIDE
     Indication: PRODUCT USED FOR UNKNOWN INDICATION
  3. JARDIANCE [Suspect]
     Active Substance: EMPAGLIFLOZIN
     Indication: TYPE 2 DIABETES MELLITUS

REACTIONS (12)
  - Ketonuria [Unknown]
  - Blood ketone body increased [Unknown]
  - Gastroenteritis [Unknown]
  - Lactic acidosis [Unknown]
  - Metabolic acidosis [Unknown]
  - Tachycardia [Unknown]
  - Bacteraemia [Unknown]
  - Euglycaemic diabetic ketoacidosis [Recovered/Resolved]
  - Alcoholic ketoacidosis [Unknown]
  - Pancreatitis [Unknown]
  - Tachypnoea [Unknown]
  - Viral upper respiratory tract infection [Unknown]
